FAERS Safety Report 7308106-4 (Version None)
Quarter: 2011Q1

REPORT INFORMATION
  Report Type: 
  Country: None (occurrence: None)
  Receive Date: 20110210
  Receipt Date: 20110201
  Transmission Date: 20110831
  Serious: Yes (Other)
  Sender: FDA-Public Use
  Company Number: DSU-2011-00810

PATIENT
  Age: 61 Year
  Sex: Male
  Weight: 73.9363 kg

DRUGS (1)
  1. BENICAR [Suspect]
     Indication: HYPERTENSION
     Dosage: 40 MG (40 MG , QD), PER ORAL
     Route: 048
     Dates: start: 20080101, end: 20110131

REACTIONS (2)
  - LACTOSE INTOLERANCE [None]
  - COELIAC DISEASE [None]
